FAERS Safety Report 13593095 (Version 1)
Quarter: 2017Q2

REPORT INFORMATION
  Report Type: Spontaneous
  Country: JP (occurrence: JP)
  Receive Date: 20170530
  Receipt Date: 20170530
  Transmission Date: 20170830
  Serious: Yes (Death, Life-Threatening, Hospitalization, Other)
  Sender: FDA-Public Use
  Company Number: JP-ELI_LILLY_AND_COMPANY-JP201702003536

PATIENT
  Age: 80 Year
  Sex: Female
  Weight: 45 kg

DRUGS (4)
  1. PACLITAXEL. [Suspect]
     Active Substance: PACLITAXEL
     Indication: GINGIVAL CANCER
     Dosage: 115 MG, UNKNOWN
     Route: 041
     Dates: start: 20161227, end: 20170113
  2. ERBITUX [Suspect]
     Active Substance: CETUXIMAB
     Dosage: 360 MG, WEEKLY (1/W)
     Route: 041
     Dates: start: 20170104, end: 20170113
  3. ERBITUX [Suspect]
     Active Substance: CETUXIMAB
     Indication: GINGIVAL CANCER
     Dosage: 570 MG, SINGLE
     Route: 041
     Dates: start: 20161227, end: 20161227
  4. TS-1 [Suspect]
     Active Substance: GIMERACIL\OTERACIL\TEGAFUR
     Indication: GINGIVAL CANCER
     Dosage: UNK UNK, UNKNOWN
     Route: 048
     Dates: start: 20170321

REACTIONS (7)
  - Respiratory failure [Fatal]
  - Septic shock [Unknown]
  - Interstitial lung disease [Recovering/Resolving]
  - Off label use [Unknown]
  - Pneumonia bacterial [Recovering/Resolving]
  - Pneumonia aspiration [Fatal]
  - Febrile neutropenia [Unknown]

NARRATIVE: CASE EVENT DATE: 20170120
